FAERS Safety Report 18489627 (Version 1)
Quarter: 2020Q4

REPORT INFORMATION
  Report Type: Spontaneous
  Country: US (occurrence: US)
  Receive Date: 20201110
  Receipt Date: 20201110
  Transmission Date: 20210114
  Serious: No
  Sender: FDA-Public Use
  Company Number: None

PATIENT
  Age: 56 Year
  Sex: Female
  Weight: 54 kg

DRUGS (9)
  1. PROPRANOLOL [Concomitant]
     Active Substance: PROPRANOLOL HYDROCHLORIDE
  2. ZOLPIDEM TARTRATE. [Concomitant]
     Active Substance: ZOLPIDEM TARTRATE
  3. MAGNESIUM [Concomitant]
     Active Substance: MAGNESIUM
  4. LORAZAPAM [Concomitant]
     Active Substance: LORAZEPAM
  5. CENTRUM SILVER 500MG [Concomitant]
  6. KLONOPIN [Suspect]
     Active Substance: CLONAZEPAM
     Indication: MYOCLONUS
     Dosage: ?          QUANTITY:1 TABLET(S);?
     Route: 048
     Dates: start: 20200222
  7. CALCIUM [Concomitant]
     Active Substance: CALCIUM
  8. SYNTHROID [Concomitant]
     Active Substance: LEVOTHYROXINE SODIUM
  9. LISINOPRIL. [Concomitant]
     Active Substance: LISINOPRIL

REACTIONS (6)
  - Abdominal pain upper [None]
  - Anxiety [None]
  - Product quality issue [None]
  - Vomiting [None]
  - Drug ineffective [None]
  - Insomnia [None]

NARRATIVE: CASE EVENT DATE: 20201109
